FAERS Safety Report 8495917-5 (Version None)
Quarter: 2012Q3

REPORT INFORMATION
  Report Type: 
  Country: None (occurrence: None)
  Receive Date: 20120709
  Receipt Date: 20120629
  Transmission Date: 20120928
  Serious: Yes (Hospitalization)
  Sender: FDA-Public Use
  Company Number: US-GLAXOSMITHKLINE-A0862937A

PATIENT
  Age: 72 Year
  Sex: Male
  Weight: 61.4 kg

DRUGS (4)
  1. AVANDARYL [Suspect]
     Indication: DIABETES MELLITUS
     Dosage: 2TAB PER DAY
     Route: 048
     Dates: start: 20060101, end: 20070101
  2. AVANDIA [Suspect]
     Indication: DIABETES MELLITUS
     Route: 048
     Dates: start: 20061001, end: 20061101
  3. VYTORIN [Concomitant]
  4. ALTACE [Concomitant]

REACTIONS (2)
  - CARDIAC FAILURE CONGESTIVE [None]
  - MYOCARDIAL INFARCTION [None]
